FAERS Safety Report 13457336 (Version 1)
Quarter: 2017Q2

REPORT INFORMATION
  Report Type: Spontaneous
  Country: US (occurrence: US)
  Receive Date: 20170418
  Receipt Date: 20170418
  Transmission Date: 20170830
  Serious: No
  Sender: FDA-Public Use
  Company Number: None

PATIENT
  Age: 37 Year
  Sex: Female
  Weight: 55.35 kg

DRUGS (3)
  1. AMPICILLIN [Concomitant]
     Active Substance: AMPICILLIN
  2. RETIN-A [Concomitant]
     Active Substance: TRETINOIN
  3. ACZONE GEL 7.5% [Suspect]
     Active Substance: DAPSONE
     Indication: ACNE
     Dosage: 1 DROP; TOPICAL
     Route: 061

REACTIONS (1)
  - Dizziness [None]

NARRATIVE: CASE EVENT DATE: 20170301
